FAERS Safety Report 11076428 (Version 7)
Quarter: 2015Q4

REPORT INFORMATION
  Report Type: Report from Study
  Country: JP (occurrence: JP)
  Receive Date: 20150429
  Receipt Date: 20151211
  Transmission Date: 20160304
  Serious: Yes (Hospitalization, Other)
  Sender: FDA-Public Use
  Company Number: JP-009507513-1504JPN023136

PATIENT
  Age: 66 Year
  Sex: Male

DRUGS (9)
  1. DIAZOXIDE [Suspect]
     Active Substance: DIAZOXIDE
     Dosage: 200 MG, HS, BEFORE BED TIME
     Route: 048
     Dates: start: 20130719, end: 20141204
  2. DIAZOXIDE [Suspect]
     Active Substance: DIAZOXIDE
     Dosage: 300 MG,  DIVIDED DOSE FREQUENCY UNKNOWN
     Route: 048
     Dates: start: 20060115, end: 20060829
  3. DIAZOXIDE [Suspect]
     Active Substance: DIAZOXIDE
     Dosage: 275 MG, 75 MG IN THE AFTERNOON AND 200 MG AT NIGHT
     Route: 048
     Dates: start: 20120913, end: 20121010
  4. DIAZOXIDE [Suspect]
     Active Substance: DIAZOXIDE
     Dosage: 250 MG, 50 MG IN THE AFTERNOON AND 200 MG AT NIGHT
     Route: 048
     Dates: start: 20121011, end: 20130620
  5. DIAZOXIDE [Suspect]
     Active Substance: DIAZOXIDE
     Dosage: 175 MG, HS, BEFORE BED TIME
     Route: 048
     Dates: start: 20141205
  6. DIAZOXIDE [Suspect]
     Active Substance: DIAZOXIDE
     Indication: HYPOGLYCAEMIA
     Dosage: 300 MG, 100 MG IN THE MORNING AND 200 MG AT NIGHT
     Route: 048
     Dates: start: 20080912, end: 20120815
  7. DIAZOXIDE [Suspect]
     Active Substance: DIAZOXIDE
     Dosage: 225 MG, 25 MG IN THE AFTERNOON AND 200 MG AT NIGHT
     Route: 048
     Dates: start: 20130621, end: 20130718
  8. DIAZOXIDE [Suspect]
     Active Substance: DIAZOXIDE
     Dosage: 400 MG, DIVIDED DOSE FREQUENCY UNKNOWN
     Route: 048
     Dates: start: 20051118, end: 20061115
  9. DIAZOXIDE [Suspect]
     Active Substance: DIAZOXIDE
     Dosage: 275 MG, 75 MG IN THE MORNING AND 200 MG AT NIGHT
     Route: 048
     Dates: start: 20120816, end: 20120912

REACTIONS (5)
  - Pneumothorax [Recovered/Resolved]
  - Lung cyst [Recovered/Resolved]
  - Pneumothorax [Recovering/Resolving]
  - Salivary gland neoplasm [Recovered/Resolved]
  - Pneumothorax [Recovered/Resolved]

NARRATIVE: CASE EVENT DATE: 20130725
